FAERS Safety Report 16945813 (Version 1)
Quarter: 2019Q4

REPORT INFORMATION
  Report Type: Spontaneous
  Country: US (occurrence: US)
  Receive Date: 20191022
  Receipt Date: 20191022
  Transmission Date: 20200122
  Serious: Yes (Death)
  Sender: FDA-Public Use
  Company Number: US-HAEMONETICS CORP-2075917

PATIENT
  Age: 54 Year
  Sex: Female
  Weight: 64.09 kg

DRUGS (1)
  1. HAEMONETICS ANTICOAGULANT SODIUM CITRATE [Suspect]
     Active Substance: TRISODIUM CITRATE DIHYDRATE
     Indication: ANTICOAGULANT THERAPY
     Dates: start: 20190920, end: 20190920

REACTIONS (1)
  - Death [Fatal]

NARRATIVE: CASE EVENT DATE: 20190920
